FAERS Safety Report 6494545-0 (Version None)
Quarter: 2009Q4

REPORT INFORMATION
  Report Type: 
  Country: None (occurrence: None)
  Receive Date: 20091214
  Receipt Date: 20090717
  Transmission Date: 20100525
  Serious: No
  Sender: FDA-Public Use
  Company Number: US-BRISTOL-MYERS SQUIBB COMPANY-14526966

PATIENT
  Age: 51 Year
  Sex: Male
  Weight: 176 kg

DRUGS (3)
  1. ABILIFY [Suspect]
     Indication: DEPRESSION
     Dates: start: 20050301
  2. GEODON [Concomitant]
  3. PAXIL [Concomitant]

REACTIONS (1)
  - MUSCLE SPASMS [None]
